FAERS Safety Report 19660254 (Version 1)
Quarter: 2021Q3

REPORT INFORMATION
  Report Type: Spontaneous
  Country: US (occurrence: US)
  Receive Date: 20210804
  Receipt Date: 20210804
  Transmission Date: 20211014
  Serious: Yes (Death, Hospitalization)
  Sender: FDA-Public Use
  Company Number: None

PATIENT
  Age: 68 Year
  Sex: Female
  Weight: 69.85 kg

DRUGS (8)
  1. OBETICHOLIC ACID [Concomitant]
     Active Substance: OBETICHOLIC ACID
  2. LISINOPRIL. [Concomitant]
     Active Substance: LISINOPRIL
  3. POLYETHYLENE GLYCOL [Concomitant]
     Active Substance: POLYETHYLENE GLYCOLS
  4. LASIX [Concomitant]
     Active Substance: FUROSEMIDE
  5. RIFAXIMIN. [Concomitant]
     Active Substance: RIFAXIMIN
  6. OCALIVA [Suspect]
     Active Substance: OBETICHOLIC ACID
  7. ALBUTEROL HFA [Concomitant]
     Active Substance: ALBUTEROL SULFATE
  8. SPIRONOLACTONE. [Concomitant]
     Active Substance: SPIRONOLACTONE

REACTIONS (1)
  - Circulatory collapse [None]

NARRATIVE: CASE EVENT DATE: 20210403
